FAERS Safety Report 5228413-9 (Version None)
Quarter: 2007Q1

REPORT INFORMATION
  Report Type: 
  Country: None (occurrence: None)
  Receive Date: 20070131
  Receipt Date: 20070131
  Transmission Date: 20070707
  Serious: Yes (Other)
  Sender: FDA-Public Use
  Company Number: None

PATIENT
  Sex: Male
  Weight: 95.2554 kg

DRUGS (11)
  1. PENICILLIN G [Suspect]
     Indication: ARTHRITIS INFECTIVE
     Dosage: 2 MILLION UNITS EVERY 4 HRS IV BS
     Route: 040
     Dates: start: 20060820
  2. INDERAL [Concomitant]
  3. LACTOBACILLUS [Concomitant]
  4. LOVENOX [Concomitant]
  5. MICRONASE [Concomitant]
  6. PROTONIX [Concomitant]
  7. ZOVIRAX [Concomitant]
  8. DILAUDID [Concomitant]
  9. MORPHINE [Concomitant]
  10. TYLENOL [Concomitant]
  11. CLINDAMYCIN [Concomitant]

REACTIONS (4)
  - INFUSION RELATED REACTION [None]
  - OXYGEN SATURATION DECREASED [None]
  - PRURITUS [None]
  - RASH ERYTHEMATOUS [None]
